FAERS Safety Report 5839536-5 (Version None)
Quarter: 2008Q3

REPORT INFORMATION
  Report Type: 
  Country: None (occurrence: None)
  Receive Date: 20080811
  Receipt Date: 20080731
  Transmission Date: 20090109
  Serious: Yes (Hospitalization)
  Sender: FDA-Public Use
  Company Number: GB-RANBAXY-2008RR-16367

PATIENT

DRUGS (1)
  1. ACETAMINOPHEN [Suspect]
     Indication: OSTEOARTHRITIS
     Route: 048

REACTIONS (3)
  - ARTHRITIS BACTERIAL [None]
  - NEUTROPHILIA [None]
  - STAPHYLOCOCCAL SCALDED SKIN SYNDROME [None]
